FAERS Safety Report 4821373-1 (Version None)
Quarter: 2005Q4

REPORT INFORMATION
  Report Type: 
  Country: None (occurrence: None)
  Receive Date: 20051104
  Receipt Date: 20051104
  Transmission Date: 20060501
  Serious: No
  Sender: FDA-Public Use
  Company Number: None

PATIENT

DRUGS (3)
  1. NAFCILLIN [Suspect]
     Dosage: INJECTABLE
  2. NAFCILLIN [Suspect]
     Dosage: INJECTABLE
  3. CEFAZOLIN [Suspect]
     Dosage: INJECTABLE

REACTIONS (1)
  - MEDICATION ERROR [None]
